FAERS Safety Report 10765003 (Version 1)
Quarter: 2015Q1

REPORT INFORMATION
  Report Type: Spontaneous
  Country: US (occurrence: US)
  Receive Date: 20150205
  Receipt Date: 20150205
  Transmission Date: 20150721
  Serious: No
  Sender: FDA-Public Use
  Company Number: US-PFIZER INC-2015048590

PATIENT
  Age: 59 Year
  Sex: Female
  Weight: 100 kg

DRUGS (1)
  1. DILANTIN [Suspect]
     Active Substance: PHENYTOIN
     Indication: CONVULSION PROPHYLAXIS
     Dosage: 500 MG, DAILY

REACTIONS (2)
  - Weight decreased [Unknown]
  - Anticonvulsant drug level increased [Unknown]
